FAERS Safety Report 16844437 (Version 2)
Quarter: 2019Q4

REPORT INFORMATION
  Report Type: Spontaneous
  Country: JP (occurrence: JP)
  Receive Date: 20190924
  Receipt Date: 20191028
  Transmission Date: 20200122
  Serious: Yes (Other)
  Sender: FDA-Public Use
  Company Number: JP-GLAXOSMITHKLINE-JP2019JPN165561

PATIENT
  Age: 72 Year
  Sex: Male

DRUGS (3)
  1. HARNAL [Concomitant]
     Active Substance: TAMSULOSIN HYDROCHLORIDE
     Dosage: 0.2 MG, QD
     Route: 048
  2. AVOLVE [Suspect]
     Active Substance: DUTASTERIDE
     Dosage: UNK, QD
     Route: 048
  3. UBRETID [Concomitant]
     Active Substance: DISTIGMINE BROMIDE
     Dosage: 5 MG, QD

REACTIONS (4)
  - Gastrostomy [Not Recovered/Not Resolved]
  - Multiple system atrophy [Unknown]
  - Dysphagia [Unknown]
  - Spinal ligament ossification [Unknown]

NARRATIVE: CASE EVENT DATE: 2019
